FAERS Safety Report 6887420-0 (Version None)
Quarter: 2010Q3

REPORT INFORMATION
  Report Type: 
  Country: None (occurrence: None)
  Receive Date: 20100730
  Receipt Date: 20100510
  Transmission Date: 20110219
  Serious: No
  Sender: FDA-Public Use
  Company Number: A0855724A

PATIENT
  Age: 74 Year
  Sex: Female
  Weight: 68.2 kg

DRUGS (12)
  1. SUMATRIPTAN [Suspect]
     Indication: MIGRAINE
     Dosage: 25MG UNKNOWN
     Route: 065
     Dates: start: 20100414
  2. IMITREX [Suspect]
     Indication: MIGRAINE
     Route: 065
  3. FISH OIL [Concomitant]
  4. FLAX SEED [Concomitant]
  5. GARLIC [Concomitant]
  6. CRANBERRY [Concomitant]
  7. CHLOROTHIAZIDE [Concomitant]
     Dosage: 250MG PER DAY
  8. AMLODIPINE [Concomitant]
     Dosage: 10MG PER DAY
  9. OMEPRAZOLE [Concomitant]
     Dosage: 20MG PER DAY
  10. POTASSIUM CHLORIDE [Concomitant]
     Dosage: 8MEQ TWICE PER DAY
  11. ALLOPURINOL [Concomitant]
     Indication: GOUT
     Dosage: 100MG PER DAY
  12. MELOXICAM [Concomitant]
     Indication: ARTHRITIS
     Dosage: 15MG PER DAY

REACTIONS (7)
  - DRUG INEFFECTIVE [None]
  - DRUG INTERACTION [None]
  - FEELING OF RELAXATION [None]
  - INCORRECT PRODUCT STORAGE [None]
  - PARAESTHESIA [None]
  - PRODUCT QUALITY ISSUE [None]
  - SOMNOLENCE [None]
